FAERS Safety Report 10211745 (Version 1)
Quarter: 2014Q2

REPORT INFORMATION
  Report Type: Spontaneous
  Country: BR (occurrence: BR)
  Receive Date: 20140602
  Receipt Date: 20140602
  Transmission Date: 20141212
  Serious: Yes (Other)
  Sender: FDA-Public Use
  Company Number: BR-ABBVIE-14P-020-1241407-00

PATIENT
  Age: 38 Year
  Sex: Female
  Weight: 70 kg

DRUGS (3)
  1. HUMIRA [Suspect]
     Indication: CROHN^S DISEASE
     Route: 058
     Dates: start: 20121020
  2. PREDNISONE [Concomitant]
     Indication: ARTHRITIS
     Route: 048
  3. PANTOPRAZOLE [Concomitant]
     Indication: GASTRITIS
     Route: 048
     Dates: start: 20140320

REACTIONS (2)
  - Gallbladder disorder [Recovered/Resolved]
  - Gastritis [Unknown]
